FAERS Safety Report 5200734-5 (Version None)
Quarter: 2006Q4

REPORT INFORMATION
  Report Type: 
  Country: None (occurrence: None)
  Receive Date: 20061016
  Receipt Date: 20050915
  Transmission Date: 20070319
  Serious: Yes (Other)
  Sender: FDA-Public Use
  Company Number: 2005129734

PATIENT
  Age: 52 Year
  Sex: Male
  Weight: 124.7392 kg

DRUGS (2)
  1. NEURONTIN [Suspect]
     Indication: NERVE INJURY
     Dosage: 3600 MG (600 MG, 6 IN 1 D), ORAL
     Route: 048
     Dates: start: 20000101
  2. GLUCOMANNAN (GLUCOMANNAN) [Concomitant]

REACTIONS (3)
  - DRUG SCREEN POSITIVE [None]
  - INCOHERENT [None]
  - LIMB CRUSHING INJURY [None]
